FAERS Safety Report 4426161-6 (Version None)
Quarter: 2004Q3

REPORT INFORMATION
  Report Type: 
  Country: None (occurrence: None)
  Receive Date: 20040811
  Receipt Date: 20040728
  Transmission Date: 20050211
  Serious: Yes (Other)
  Sender: FDA-Public Use
  Company Number: USA040155876

PATIENT
  Age: 52 Year
  Sex: Female
  Weight: 50 kg

DRUGS (3)
  1. EVISTA [Suspect]
     Indication: OSTEOPOROSIS
  2. SINEMET [Concomitant]
  3. VALIUM [Concomitant]

REACTIONS (3)
  - BONE DENSITY DECREASED [None]
  - STOMACH DISCOMFORT [None]
  - WEIGHT DECREASED [None]
